FAERS Safety Report 7463859-X (Version None)
Quarter: 2011Q2

REPORT INFORMATION
  Report Type: 
  Country: None (occurrence: None)
  Receive Date: 20110506
  Receipt Date: 20110426
  Transmission Date: 20111010
  Serious: Yes (Hospitalization)
  Sender: FDA-Public Use
  Company Number: CA-JNJFOC-20110411917

PATIENT
  Sex: Female
  Weight: 63 kg

DRUGS (3)
  1. VENTOLIN [Concomitant]
     Indication: ILL-DEFINED DISORDER
  2. REMICADE [Suspect]
     Indication: ANKYLOSING SPONDYLITIS
     Route: 042
  3. SYMBICORT [Concomitant]
     Indication: ILL-DEFINED DISORDER

REACTIONS (2)
  - ASTHMA [None]
  - BRONCHITIS [None]
